FAERS Safety Report 15397371 (Version 1)
Quarter: 2018Q4

REPORT INFORMATION
  Report Type: Spontaneous
  Country: US (occurrence: US)
  Receive Date: 20180918
  Receipt Date: 20180918
  Transmission Date: 20190204
  Serious: Yes (Disabling, Other)
  Sender: FDA-Public Use
  Company Number: US-PFIZER INC-2018370591

PATIENT

DRUGS (4)
  1. NORCO [Suspect]
     Active Substance: ACETAMINOPHEN\HYDROCODONE BITARTRATE
  2. REGLAN [Suspect]
     Active Substance: METOCLOPRAMIDE HYDROCHLORIDE
  3. LYRICA [Suspect]
     Active Substance: PREGABALIN
  4. COMPAZINE [Suspect]
     Active Substance: PROCHLORPERAZINE MALEATE

REACTIONS (11)
  - Nerve injury [Unknown]
  - Injury [Unknown]
  - Panic attack [Unknown]
  - Mental disability [Unknown]
  - Neuralgia [Unknown]
  - Torticollis [Unknown]
  - Tardive dyskinesia [Unknown]
  - Dyslexia [Unknown]
  - Feeling abnormal [Unknown]
  - Pain [Unknown]
  - Dysarthria [Unknown]
